FAERS Safety Report 7248763-4 (Version None)
Quarter: 2011Q1

REPORT INFORMATION
  Report Type: 
  Country: None (occurrence: None)
  Receive Date: 20110128
  Receipt Date: 20110119
  Transmission Date: 20110831
  Serious: Yes (Other)
  Sender: FDA-Public Use
  Company Number: US-CEPHALON-2011000302

PATIENT
  Sex: Female
  Weight: 64 kg

DRUGS (1)
  1. AMRIX [Suspect]
     Route: 048
     Dates: start: 20110107, end: 20110112

REACTIONS (1)
  - CHEST PAIN [None]
